FAERS Safety Report 6150500-1 (Version None)
Quarter: 2009Q2

REPORT INFORMATION
  Report Type: 
  Country: None (occurrence: None)
  Receive Date: 20090409
  Receipt Date: 20090409
  Transmission Date: 20091009
  Serious: Yes (Other)
  Sender: FDA-Public Use
  Company Number: US-PFIZER INC-2008094282

PATIENT
  Sex: Male
  Weight: 102.27 kg

DRUGS (4)
  1. CHANTIX [Suspect]
     Indication: EX-TOBACCO USER
     Dosage: 1 MG, 2X/DAY
     Route: 048
     Dates: start: 20080731, end: 20080901
  2. BENAZEPRIL HYDROCHLORIDE [Concomitant]
  3. CARVEDILOL [Concomitant]
  4. PRAVASTATIN [Concomitant]

REACTIONS (4)
  - DEPRESSION [None]
  - MANIA [None]
  - OBSESSIVE-COMPULSIVE DISORDER [None]
  - PERSONALITY CHANGE [None]
